FAERS Safety Report 7778324-X (Version None)
Quarter: 2011Q3

REPORT INFORMATION
  Report Type: 
  Country: None (occurrence: None)
  Receive Date: 20110926
  Receipt Date: 20110913
  Transmission Date: 20111222
  Serious: Yes (Hospitalization, Other)
  Sender: FDA-Public Use
  Company Number: US-BAYER-2010-001668

PATIENT
  Age: 34 Year
  Sex: Female
  Weight: 68 kg

DRUGS (3)
  1. YASMIN [Suspect]
     Indication: PREMENSTRUAL SYNDROME
     Dosage: UNK
     Dates: start: 20050101
  2. YAZ [Suspect]
     Indication: PREMENSTRUAL SYNDROME
     Dosage: UNK
     Dates: start: 20050101
  3. DROSPIRENONE AND ETHINYL ESTRADIOL [Suspect]
     Indication: PREMENSTRUAL SYNDROME
     Dosage: UNK
     Dates: start: 20050101

REACTIONS (5)
  - THROMBOSIS [None]
  - INJURY [None]
  - PULMONARY EMBOLISM [None]
  - PAIN [None]
  - DEEP VEIN THROMBOSIS [None]
